FAERS Safety Report 5985228-1 (Version None)
Quarter: 2008Q4

REPORT INFORMATION
  Report Type: 
  Country: None (occurrence: None)
  Receive Date: 20081203
  Receipt Date: 20081119
  Transmission Date: 20090506
  Serious: Yes (Hospitalization, Other)
  Sender: FDA-Public Use
  Company Number: TRP_05977_2008

PATIENT
  Sex: Male

DRUGS (10)
  1. INFERGEN [Suspect]
     Indication: HEPATITIS C
     Dosage: 21 UG QD, [0.7 NL( 70 U PER INSULIN SYRINGE) QD] SUBCUTANEOUS
     Route: 058
     Dates: start: 20080727, end: 20081026
  2. RIBASPHERE [Suspect]
     Indication: HEPATITIS C
     Dosage: 600 MG BID ORAL
     Route: 048
     Dates: start: 20080727, end: 20081026
  3. BACLOFEN [Concomitant]
  4. KLONOPIN [Concomitant]
  5. OXYCODONE HCL [Concomitant]
  6. HYDROCODONE BITARTRATE [Concomitant]
  7. CYMBALTA [Concomitant]
  8. ALLOPURINOL [Concomitant]
  9. WELLBUTRIN [Concomitant]
  10. ADVAIR DISKUS 250/50 [Concomitant]

REACTIONS (10)
  - ANAEMIA [None]
  - ARTHRALGIA [None]
  - DEPRESSION [None]
  - FATIGUE [None]
  - GOUT [None]
  - HAEMATOCHEZIA [None]
  - HYPERSOMNIA [None]
  - MYALGIA [None]
  - PANIC ATTACK [None]
  - RESPIRATORY DISORDER [None]
